FAERS Safety Report 15011016 (Version 2)
Quarter: 2019Q4

REPORT INFORMATION
  Report Type: Spontaneous
  Country: IL (occurrence: IL)
  Receive Date: 20180614
  Receipt Date: 20191015
  Transmission Date: 20200122
  Serious: Yes (Hospitalization, Disabling, Other)
  Sender: FDA-Public Use
  Company Number: IL-AMGEN-ISRSP2018078305

PATIENT
  Age: 73 Year
  Sex: Female
  Weight: 57 kg

DRUGS (1)
  1. PROLIA [Suspect]
     Active Substance: DENOSUMAB
     Indication: OSTEOPOROSIS
     Dosage: UNK, Q6MO
     Route: 065
     Dates: start: 2012, end: 201705

REACTIONS (11)
  - Intervertebral disc degeneration [Unknown]
  - Mobility decreased [Unknown]
  - Hypercalciuria [Unknown]
  - Hypercalcaemia [Unknown]
  - Insomnia [Unknown]
  - Spinal compression fracture [Unknown]
  - Dysstasia [Unknown]
  - Kyphoscoliosis [Unknown]
  - Rebound effect [Unknown]
  - Loss of personal independence in daily activities [Unknown]
  - Body height decreased [Unknown]

NARRATIVE: CASE EVENT DATE: 20180119
